FAERS Safety Report 18443531 (Version 1)
Quarter: 2020Q4

REPORT INFORMATION
  Report Type: Spontaneous
  Country: US (occurrence: US)
  Receive Date: 20201029
  Receipt Date: 20201029
  Transmission Date: 20210114
  Serious: Yes (Hospitalization)
  Sender: FDA-Public Use
  Company Number: US-ABBVIE-20K-163-3627737-00

PATIENT
  Age: 62 Year
  Sex: Female
  Weight: 55.39 kg

DRUGS (11)
  1. CRANBERRY. [Concomitant]
     Active Substance: CRANBERRY
     Indication: SUPPLEMENTATION THERAPY
  2. SYNTHROID [Suspect]
     Active Substance: LEVOTHYROXINE SODIUM
     Dosage: DECREASED DOSE
     Route: 048
     Dates: start: 201210
  3. FAMOTIDINE. [Concomitant]
     Active Substance: FAMOTIDINE
     Indication: GASTROOESOPHAGEAL REFLUX DISEASE
  4. SYNTHROID [Suspect]
     Active Substance: LEVOTHYROXINE SODIUM
     Indication: HYPOTHYROIDISM
     Route: 048
     Dates: start: 200905, end: 201210
  5. SYNTHROID [Suspect]
     Active Substance: LEVOTHYROXINE SODIUM
     Dosage: HALF A TABLET ON SUNDAYS, WHOLE TABLET ALL OTHER DAYS
     Route: 048
  6. BUSPIRONE [Concomitant]
     Active Substance: BUSPIRONE HYDROCHLORIDE
     Indication: ANXIETY
  7. SYNTHROID [Suspect]
     Active Substance: LEVOTHYROXINE SODIUM
     Indication: AUTOIMMUNE THYROIDITIS
     Route: 048
     Dates: start: 200812, end: 200905
  8. LOSARTAN. [Concomitant]
     Active Substance: LOSARTAN
     Indication: HYPERTENSION
  9. GLUCOSAMINE + CHONDROITIN + MSM [Concomitant]
     Indication: SUPPLEMENTATION THERAPY
  10. CALCIUM VITAMIN D3 [Concomitant]
     Indication: SUPPLEMENTATION THERAPY
     Dosage: CALCIUM-VITAMIN D3-MINERALS
  11. VITAMIN C [Concomitant]
     Active Substance: ASCORBIC ACID
     Indication: SUPPLEMENTATION THERAPY

REACTIONS (2)
  - Neoplasm malignant [Recovering/Resolving]
  - Hot flush [Recovering/Resolving]

NARRATIVE: CASE EVENT DATE: 201207
